FAERS Safety Report 10250091 (Version 1)
Quarter: 2014Q2

REPORT INFORMATION
  Report Type: Spontaneous
  Country: US (occurrence: US)
  Receive Date: 20140620
  Receipt Date: 20140620
  Transmission Date: 20141212
  Serious: No
  Sender: FDA-Public Use
  Company Number: US-BRISTOL-MYERS SQUIBB COMPANY-20659991

PATIENT
  Age: 71 Year
  Sex: Male
  Weight: 120.77 kg

DRUGS (13)
  1. ELIQUIS [Suspect]
     Indication: CEREBROVASCULAR ACCIDENT PROPHYLAXIS
  2. GLUCOSAMINE [Concomitant]
  3. SYNTHROID [Concomitant]
  4. FUROSEMIDE [Concomitant]
     Dosage: 1/2 TABLET QAM
  5. DETROL LA [Concomitant]
  6. NEXIUM [Concomitant]
  7. LOVAZA [Concomitant]
     Dosage: 1 DF=LOVAZA 1GM BID
  8. BENICAR [Concomitant]
     Dosage: 1/2 TABLET ,QPM
  9. CRESTOR [Concomitant]
     Dosage: 10MG QPM
  10. VITAMINS [Concomitant]
  11. VITAMIN D3 [Concomitant]
  12. MESALAMINE [Concomitant]
     Indication: COLITIS
  13. COREG [Concomitant]

REACTIONS (2)
  - Sinus disorder [Unknown]
  - Tooth extraction [Unknown]
